FAERS Safety Report 7439807-5 (Version None)
Quarter: 2011Q2

REPORT INFORMATION
  Report Type: 
  Country: None (occurrence: None)
  Receive Date: 20110427
  Receipt Date: 20110418
  Transmission Date: 20111010
  Serious: Yes (Hospitalization, Other)
  Sender: FDA-Public Use
  Company Number: US-ASTRAZENECA-2011SE22029

PATIENT
  Age: 53 Year
  Sex: Female
  Weight: 69.4 kg

DRUGS (12)
  1. EFFEXOR [Concomitant]
  2. SEROQUEL [Suspect]
     Indication: BIPOLAR DISORDER
     Route: 048
  3. FOLIC ACID [Concomitant]
  4. FUROSEMIDE [Concomitant]
  5. VIMPAT [Concomitant]
  6. ZINC [Concomitant]
  7. ATENOLOL [Concomitant]
  8. DIVALPROEX [Concomitant]
  9. HYDROXYZINE [Concomitant]
  10. ZONISANIDE [Concomitant]
  11. SIMVASTATIN [Concomitant]
  12. CLONAZEPAM [Concomitant]

REACTIONS (9)
  - EPILEPSY [None]
  - CORONARY ARTERIAL STENT INSERTION [None]
  - TENDON RUPTURE [None]
  - LIGAMENT RUPTURE [None]
  - GASTRIC BYPASS [None]
  - FALL [None]
  - INCORRECT DOSE ADMINISTERED [None]
  - UPPER LIMB FRACTURE [None]
  - MYOCARDIAL INFARCTION [None]
